FAERS Safety Report 13986260 (Version 1)
Quarter: 2017Q3

REPORT INFORMATION
  Report Type: Spontaneous
  Country: ZA (occurrence: ZA)
  Receive Date: 20170919
  Receipt Date: 20170919
  Transmission Date: 20171128
  Serious: Yes (Other)
  Sender: FDA-Public Use
  Company Number: PHHY2017ZA136264

PATIENT
  Sex: Male

DRUGS (1)
  1. HEXAZIDE [Suspect]
     Active Substance: HYDROCHLOROTHIAZIDE
     Indication: HYPERTENSION
     Dosage: 25MGQ
     Route: 048

REACTIONS (1)
  - Cerebrovascular accident [Recovered/Resolved]
